FAERS Safety Report 10571389 (Version 2)
Quarter: 2014Q4

REPORT INFORMATION
  Report Type: Spontaneous
  Country: JP (occurrence: JP)
  Receive Date: 20141107
  Receipt Date: 20141112
  Transmission Date: 20150529
  Serious: Yes (Disabling, Other)
  Sender: FDA-Public Use
  Company Number: JP-ASTRAZENECA-2014SE83363

PATIENT
  Age: 61 Year
  Sex: Male

DRUGS (9)
  1. ROCURONIUM BROMIDE. [Suspect]
     Active Substance: ROCURONIUM BROMIDE
     Indication: HYPOTONIA
     Route: 042
     Dates: start: 201403, end: 201403
  2. DROPERIDOL. [Concomitant]
     Active Substance: DROPERIDOL
     Indication: POSTOPERATIVE ANALGESIA
     Dosage: POSTOPERATIVE DOSE 3.75 MG CONTINUOUS INJECTION
     Route: 008
     Dates: start: 201403, end: 201403
  3. ANAPEINE [Suspect]
     Active Substance: ROPIVACAINE HYDROCHLORIDE
     Indication: EPIDURAL ANAESTHESIA
     Dosage: DURING THE OPERATION
     Route: 008
     Dates: start: 201403, end: 201403
  4. REMIFENTANIL [Suspect]
     Active Substance: REMIFENTANIL
     Indication: MAINTENANCE OF ANAESTHESIA
     Dosage: 1 MG CONTINUOUS INJECTION
     Route: 042
     Dates: start: 201403, end: 201403
  5. SEVOFLURANE. [Suspect]
     Active Substance: SEVOFLURANE
     Indication: MAINTENANCE OF ANAESTHESIA
     Route: 055
     Dates: start: 201403, end: 201403
  6. PROPOFOL. [Suspect]
     Active Substance: PROPOFOL
     Indication: GENERAL ANAESTHESIA
     Route: 042
     Dates: start: 201403
  7. ANAPEINE [Suspect]
     Active Substance: ROPIVACAINE HYDROCHLORIDE
     Indication: EPIDURAL ANAESTHESIA
     Dosage: POSTOPERATIVE DOSE 300 ML CONTINUOUS INJECTION
     Route: 008
     Dates: start: 201403, end: 201403
  8. FENTANYL. [Suspect]
     Active Substance: FENTANYL
     Indication: EPIDURAL ANAESTHESIA
     Dosage: 0.1 MG DURING THE OPERATION
     Route: 008
     Dates: start: 201403, end: 201403
  9. FENTANYL. [Suspect]
     Active Substance: FENTANYL
     Indication: EPIDURAL ANAESTHESIA
     Dosage: 1 MG POSTOPERATIVE DOSE CONTINUOUS INJECTION
     Route: 008
     Dates: start: 201403, end: 201403

REACTIONS (1)
  - Spinal cord infarction [Not Recovered/Not Resolved]

NARRATIVE: CASE EVENT DATE: 201403
